FAERS Safety Report 10041049 (Version 1)
Quarter: 2014Q1

REPORT INFORMATION
  Report Type: Spontaneous
  Country: US (occurrence: US)
  Receive Date: 20140327
  Receipt Date: 20140327
  Transmission Date: 20141002
  Serious: Yes (Other)
  Sender: FDA-Public Use
  Company Number: 2014SP000901

PATIENT
  Age: 50 Year
  Sex: Female

DRUGS (3)
  1. LATUDA [Suspect]
     Indication: BIPOLAR I DISORDER
     Route: 048
     Dates: start: 201401, end: 201403
  2. LATUDA [Suspect]
     Indication: BIPOLAR I DISORDER
     Route: 048
     Dates: start: 201401, end: 201401
  3. DIAZEPAM [Concomitant]
     Route: 048

REACTIONS (3)
  - Liver function test abnormal [Unknown]
  - Blood triglycerides increased [Unknown]
  - Blood cholesterol increased [Unknown]
